FAERS Safety Report 19913688 (Version 7)
Quarter: 2023Q1

REPORT INFORMATION
  Report Type: Spontaneous
  Country: JP (occurrence: JP)
  Receive Date: 20211004
  Receipt Date: 20230110
  Transmission Date: 20230418
  Serious: Yes (Hospitalization, Congenital Anomaly, Other)
  Sender: FDA-Public Use
  Company Number: JP-UCBJ-CD202108829UCBPHAPROD

PATIENT
  Sex: Male
  Weight: 3.106 kg

DRUGS (4)
  1. LEVETIRACETAM [Suspect]
     Active Substance: LEVETIRACETAM
     Indication: Epilepsy
     Dosage: 125 MILLIGRAM, 2X/DAY (BID)
     Route: 064
     Dates: start: 202012, end: 20210922
  2. LEVETIRACETAM [Suspect]
     Active Substance: LEVETIRACETAM
     Dosage: 125 MILLIGRAM, 2X/DAY (BID)
     Route: 063
  3. FOLIC ACID [Concomitant]
     Active Substance: FOLIC ACID
     Indication: Prophylaxis
     Dosage: UNK
     Route: 064
     Dates: end: 2021
  4. OXYTOCIN [Concomitant]
     Active Substance: OXYTOCIN
     Indication: Uterine hypotonus
     Dosage: UNK
     Route: 064
     Dates: start: 20210922, end: 20210922

REACTIONS (5)
  - Ventricular septal defect [Recovering/Resolving]
  - Meconium stain [Unknown]
  - Maternal exposure during pregnancy [Unknown]
  - Maternal exposure before pregnancy [Unknown]
  - Exposure via breast milk [Unknown]

NARRATIVE: CASE EVENT DATE: 20210101
